FAERS Safety Report 18419327 (Version 2)
Quarter: 2020Q4

REPORT INFORMATION
  Report Type: Spontaneous
  Country: GB (occurrence: GB)
  Receive Date: 20201023
  Receipt Date: 20201102
  Transmission Date: 20210114
  Serious: Yes (Other)
  Sender: FDA-Public Use
  Company Number: GB-GLAXOSMITHKLINE-GB2020EME210728

PATIENT
  Age: 55 Year
  Sex: Female
  Weight: 60 kg

DRUGS (1)
  1. NIRAPARIB [Suspect]
     Active Substance: NIRAPARIB
     Indication: OVARIAN CANCER
     Dosage: 200 MG, QD
     Dates: start: 20200608, end: 20200806

REACTIONS (1)
  - Malignant neoplasm progression [Unknown]

NARRATIVE: CASE EVENT DATE: 20200806
